FAERS Safety Report 25999897 (Version 1)
Quarter: 2025Q4

REPORT INFORMATION
  Report Type: Spontaneous
  Country: US (occurrence: None)
  Receive Date: 20251103
  Receipt Date: 20251103
  Transmission Date: 20260118
  Serious: Yes (Other)
  Sender: FDA-CTU
  Company Number: None

PATIENT
  Age: 79 Year
  Sex: Female
  Weight: 56.7 kg

DRUGS (6)
  1. DEVICE [Suspect]
     Active Substance: DEVICE
  2. EVENITY [Suspect]
     Active Substance: ROMOSOZUMAB-AQQG
  3. RECLAST [Concomitant]
     Active Substance: ZOLEDRONIC ACID
  4. CALCIUM [Concomitant]
     Active Substance: CALCIUM
  5. VITAMINS [Concomitant]
     Active Substance: VITAMINS
  6. ASPIRIN [Concomitant]
     Active Substance: ASPIRIN

REACTIONS (10)
  - Head discomfort [None]
  - Hypoaesthesia [None]
  - Tongue discomfort [None]
  - Hypoaesthesia oral [None]
  - Feeling abnormal [None]
  - Spinal disorder [None]
  - Radius fracture [None]
  - Musculoskeletal discomfort [None]
  - Procedural complication [None]
  - Device use issue [None]

NARRATIVE: CASE EVENT DATE: 20251102
